FAERS Safety Report 4634951-X (Version None)
Quarter: 2005Q2

REPORT INFORMATION
  Report Type: 
  Country: None (occurrence: None)
  Receive Date: 20050411
  Receipt Date: 20050329
  Transmission Date: 20051028
  Serious: Yes (Other)
  Sender: FDA-Public Use
  Company Number: 2005051900

PATIENT
  Age: 70 Year
  Sex: Male

DRUGS (2)
  1. NEURONTIN [Suspect]
     Indication: CONVULSION
     Dosage: 300 MG, ORAL
     Route: 048
     Dates: start: 20000101
  2. ARICEPT [Suspect]
     Indication: VASCULAR DEMENTIA
     Dosage: 10 MG
     Dates: start: 20041101

REACTIONS (2)
  - CONVULSION [None]
  - VASCULAR DEMENTIA [None]
